FAERS Safety Report 6134836-6 (Version None)
Quarter: 2009Q1

REPORT INFORMATION
  Report Type: 
  Country: None (occurrence: None)
  Receive Date: 20090327
  Receipt Date: 20090318
  Transmission Date: 20090719
  Serious: Yes (Death)
  Sender: FDA-Public Use
  Company Number: DE-NOVOPROD-276022

PATIENT
  Age: 5 Day
  Sex: Male
  Weight: 0.98 kg

DRUGS (7)
  1. NOVOSEVEN [Suspect]
     Indication: GASTROINTESTINAL HAEMORRHAGE
     Dosage: 120 UG/KG, UNK
     Route: 042
  2. NOVOSEVEN [Suspect]
     Dosage: 200 UG/KG, UNK
     Route: 042
  3. VANCOMYCIN [Concomitant]
  4. CEFOTAXIM [Concomitant]
  5. BLOOD CELLS, PACKED HUMAN [Concomitant]
  6. DOPAMIN                            /00000101/ [Concomitant]
  7. DOBUTAMIN [Concomitant]

REACTIONS (1)
  - DRUG INEFFECTIVE [None]
